FAERS Safety Report 4545344-8 (Version None)
Quarter: 2005Q1

REPORT INFORMATION
  Report Type: 
  Country: None (occurrence: None)
  Receive Date: 20050103
  Receipt Date: 20041229
  Transmission Date: 20050727
  Serious: Yes (Life-Threatening)
  Sender: FDA-Public Use
  Company Number: TCI2004A04758

PATIENT
  Age: 7 Decade
  Sex: Male

DRUGS (2)
  1. LEUPROLIDE ACETATE [Suspect]
     Dosage: 11.25 MG (11.25 MG, 1 IN 12 WK)
     Route: 058
  2. LANSOPRAZOLE [Suspect]
     Route: 048

REACTIONS (3)
  - ASCITES [None]
  - BLOOD BILIRUBIN INCREASED [None]
  - HEPATIC FAILURE [None]
